FAERS Safety Report 7543302-2 (Version None)
Quarter: 2011Q2

REPORT INFORMATION
  Report Type: 
  Country: None (occurrence: None)
  Receive Date: 20110524
  Receipt Date: 20110127
  Transmission Date: 20111010
  Serious: No
  Sender: FDA-Public Use
  Company Number: 024054

PATIENT
  Sex: Female
  Weight: 66 kg

DRUGS (2)
  1. CIMZIA [Suspect]
     Indication: CROHN'S DISEASE
     Dosage: 400 MG1X/2 WEEKS, TWO SHOTS SUBCUTANEOUS, 400 MG, 200 MG *2 SUBCUTANEOUS
     Route: 058
     Dates: start: 20101119
  2. CIMZIA [Suspect]

REACTIONS (2)
  - INJECTION SITE REACTION [None]
  - ABDOMINAL PAIN UPPER [None]
